FAERS Safety Report 18081223 (Version 2)
Quarter: 2020Q3

REPORT INFORMATION
  Report Type: Spontaneous
  Country: DE (occurrence: DE)
  Receive Date: 20200728
  Receipt Date: 20200922
  Transmission Date: 20201103
  Serious: Yes (Hospitalization, Other)
  Sender: FDA-Public Use
  Company Number: DE-JNJFOC-20200732476

PATIENT
  Age: 82 Year
  Sex: Female

DRUGS (2)
  1. XARELTO [Suspect]
     Active Substance: RIVAROXABAN
     Indication: ATRIAL FIBRILLATION
     Dosage: 20 MG
     Route: 048
  2. XARELTO [Suspect]
     Active Substance: RIVAROXABAN
     Dosage: 20 MG
     Route: 048

REACTIONS (3)
  - Epistaxis [Unknown]
  - Cerebral infarction [Unknown]
  - Hemiparesis [Unknown]
